FAERS Safety Report 13086868 (Version 2)
Quarter: 2017Q1

REPORT INFORMATION
  Report Type: Spontaneous
  Country: TR (occurrence: TR)
  Receive Date: 20170104
  Receipt Date: 20170116
  Transmission Date: 20170428
  Serious: Yes (Death, Hospitalization, Other)
  Sender: FDA-Public Use
  Company Number: TR-AMGEN-TURSP2016182904

PATIENT
  Age: 69 Year
  Sex: Male
  Weight: 72 kg

DRUGS (2)
  1. KYPROLIS [Suspect]
     Active Substance: CARFILZOMIB
     Indication: PLASMA CELL MYELOMA
     Dosage: 20 MG/M2 PER DAY, 39 MG PER DAY, REPEATED FOR THREE WEEKS TWICE A WEEK, ONCE IN A TWENTY EIGHT DAYS
     Route: 065
     Dates: start: 20160928
  2. KYPROLIS [Suspect]
     Active Substance: CARFILZOMIB
     Dosage: 27 MG/M2 PER DAY, 51 MG PER DAY, REPEATED FOR THREE WEEKS TWICE A WEEK, ONCE IN A TWENTY EIGHT DAYS
     Route: 065

REACTIONS (11)
  - Cardiogenic shock [Unknown]
  - Cardiac failure [Not Recovered/Not Resolved]
  - Death [Fatal]
  - Tachycardia [Unknown]
  - Cardiomyopathy [Not Recovered/Not Resolved]
  - Exercise tolerance decreased [Unknown]
  - Heart rate irregular [Unknown]
  - Orthopnoea [Unknown]
  - Fatigue [Unknown]
  - Asthenia [Unknown]
  - Dyspnoea [Unknown]

NARRATIVE: CASE EVENT DATE: 2016
